FAERS Safety Report 21740560 (Version 2)
Quarter: 2023Q2

REPORT INFORMATION
  Report Type: Spontaneous
  Country: US (occurrence: US)
  Receive Date: 20221216
  Receipt Date: 20230414
  Transmission Date: 20230722
  Serious: Yes (Other)
  Sender: FDA-Public Use
  Company Number: US-TEVA-2022-US-2836169

PATIENT
  Sex: Female

DRUGS (1)
  1. AUSTEDO [Suspect]
     Active Substance: DEUTETRABENAZINE
     Indication: Tardive dyskinesia
     Route: 065

REACTIONS (1)
  - Hepatic enzyme increased [Unknown]
